FAERS Safety Report 14498326 (Version 1)
Quarter: 2018Q1

REPORT INFORMATION
  Report Type: Spontaneous
  Country: US (occurrence: US)
  Receive Date: 20180206
  Receipt Date: 20180206
  Transmission Date: 20180509
  Serious: Yes (Disabling)
  Sender: FDA-Public Use
  Company Number: None

PATIENT
  Age: 61 Year
  Sex: Female
  Weight: 69.75 kg

DRUGS (17)
  1. FRANKINCENSE OIL [Concomitant]
     Active Substance: FRANKINCENSE OIL
  2. NETTLE [Concomitant]
     Active Substance: URTICA DIOICA POLLEN
  3. CHAMOMILE [Concomitant]
     Active Substance: CHAMOMILE
  4. VITAMIN C [Concomitant]
     Active Substance: ASCORBIC ACID
  5. VITAMIN D [Concomitant]
     Active Substance: CHOLECALCIFEROL
  6. MULTIVITAMIN [Concomitant]
     Active Substance: VITAMINS
  7. CLOVE. [Concomitant]
     Active Substance: CLOVE
  8. PEPPERMINT. [Concomitant]
     Active Substance: PEPPERMINT
  9. HIBISCUS [Concomitant]
  10. EPSOM SALT BATH WITH APPLE CIDER VINEGAR AND TEA TREE ESSENTIAL OIL AND LEMON ESSENTIAL OIL [Concomitant]
  11. TRIAMCINOLONE ACETONIDE. [Suspect]
     Active Substance: TRIAMCINOLONE ACETONIDE
     Indication: ECZEMA
     Route: 061
     Dates: start: 20140108, end: 20180101
  12. ROMAN CHAMOMILE OIL [Concomitant]
  13. LEMON OIL [Concomitant]
     Active Substance: LEMON OIL
  14. TEA TREE OIL. [Concomitant]
     Active Substance: TEA TREE OIL
  15. CLOBETASOL PROPIONATE OINTMENT USP 0.05% [Suspect]
     Active Substance: CLOBETASOL PROPIONATE
     Indication: ECZEMA
     Route: 061
     Dates: start: 19970201, end: 20130102
  16. SYNTHROID [Concomitant]
     Active Substance: LEVOTHYROXINE SODIUM
  17. MYRRH [Concomitant]
     Active Substance: MYRRH

REACTIONS (1)
  - Steroid withdrawal syndrome [None]

NARRATIVE: CASE EVENT DATE: 20130102
